FAERS Safety Report 22072338 (Version 1)
Quarter: 2023Q1

REPORT INFORMATION
  Report Type: Spontaneous
  Country: JP (occurrence: JP)
  Receive Date: 20230308
  Receipt Date: 20230308
  Transmission Date: 20230418
  Serious: Yes (Other)
  Sender: FDA-Public Use
  Company Number: JP-TAIHO-2023-001540

PATIENT
  Age: 42 Year
  Sex: Female

DRUGS (3)
  1. ABRAXANE [Suspect]
     Active Substance: PACLITAXEL
     Indication: Invasive ductal breast carcinoma
     Dosage: NI
     Route: 041
     Dates: start: 202210, end: 2023
  2. TRASTUZUMAB [Concomitant]
     Active Substance: TRASTUZUMAB
     Indication: Invasive ductal breast carcinoma
     Dosage: NI
     Dates: start: 202206
  3. PERJETA [Concomitant]
     Active Substance: PERTUZUMAB
     Indication: Invasive ductal breast carcinoma
     Dosage: NI
     Dates: start: 202206

REACTIONS (1)
  - Pseudocirrhosis [Unknown]

NARRATIVE: CASE EVENT DATE: 20220101
